FAERS Safety Report 10634948 (Version 2)
Quarter: 2014Q4

REPORT INFORMATION
  Report Type: Spontaneous
  Country: BE (occurrence: BE)
  Receive Date: 20141205
  Receipt Date: 20141222
  Transmission Date: 20150529
  Serious: Yes (Other)
  Sender: FDA-Public Use
  Company Number: BE-JNJFOC-20141200499

PATIENT
  Age: 90 Year
  Sex: Female

DRUGS (11)
  1. CORUNO [Concomitant]
     Active Substance: MOLSIDOMINE
     Route: 065
  2. XARELTO [Suspect]
     Active Substance: RIVAROXABAN
     Indication: ATRIAL FIBRILLATION
     Route: 048
     Dates: start: 201308, end: 201411
  3. COVERSYL [Concomitant]
     Active Substance: PERINDOPRIL
     Route: 065
  4. ALDACTONE [Concomitant]
     Active Substance: SPIRONOLACTONE
     Route: 065
  5. XARELTO [Suspect]
     Active Substance: RIVAROXABAN
     Indication: CEREBROVASCULAR ACCIDENT PROPHYLAXIS
     Route: 048
     Dates: start: 201308, end: 201411
  6. FUROSEMIDE. [Concomitant]
     Active Substance: FUROSEMIDE
     Route: 065
  7. GABAPENTIN. [Concomitant]
     Active Substance: GABAPENTIN
     Route: 065
     Dates: start: 2014, end: 201411
  8. ASAFLOW [Concomitant]
     Active Substance: ASPIRIN
     Route: 065
  9. MOXONIDINE [Concomitant]
     Active Substance: MOXONIDINE
     Route: 065
  10. LENDORMIN [Concomitant]
     Active Substance: BROTIZOLAM
     Route: 065
  11. SIMVASTATINE [Concomitant]
     Active Substance: SIMVASTATIN
     Route: 065
     Dates: end: 201411

REACTIONS (3)
  - Thrombocytopenia [Unknown]
  - Erythropenia [Unknown]
  - Leukopenia [Unknown]
